FAERS Safety Report 20718267 (Version 2)
Quarter: 2022Q2

REPORT INFORMATION
  Report Type: Spontaneous
  Country: CA (occurrence: CA)
  Receive Date: 20220418
  Receipt Date: 20220525
  Transmission Date: 20220721
  Serious: Yes (Death, Life-Threatening, Hospitalization, Other)
  Sender: FDA-Public Use
  Company Number: CA-CELGENE-CAN-20211104350

PATIENT
  Age: 74 Year
  Sex: Male

DRUGS (55)
  1. AZACITIDINE [Suspect]
     Active Substance: AZACITIDINE
     Indication: Acute myeloid leukaemia
     Route: 058
     Dates: start: 20210412
  2. VENETOCLAX [Suspect]
     Active Substance: VENETOCLAX
     Indication: Acute myeloid leukaemia
     Route: 048
     Dates: start: 20210412
  3. VENETOCLAX [Suspect]
     Active Substance: VENETOCLAX
     Route: 044
     Dates: start: 20210413
  4. VENETOCLAX [Suspect]
     Active Substance: VENETOCLAX
     Route: 048
     Dates: start: 20210414
  5. VENETOCLAX [Suspect]
     Active Substance: VENETOCLAX
     Route: 048
     Dates: start: 20210913
  6. PEVONEDISTAT [Suspect]
     Active Substance: PEVONEDISTAT
     Indication: Acute myeloid leukaemia
     Route: 042
     Dates: start: 20210412
  7. PEVONEDISTAT [Suspect]
     Active Substance: PEVONEDISTAT
     Dosage: METER
     Route: 048
     Dates: start: 20210413
  8. PEVONEDISTAT [Suspect]
     Active Substance: PEVONEDISTAT
     Dosage: #1
     Route: 058
     Dates: start: 20210414
  9. PEVONEDISTAT [Suspect]
     Active Substance: PEVONEDISTAT
     Dosage: 100 MILLIGRAM
     Route: 065
     Dates: start: 20210913
  10. PEVONEDISTAT [Suspect]
     Active Substance: PEVONEDISTAT
     Dosage: 200 MILLIGRAM
     Route: 065
  11. PEVONEDISTAT [Suspect]
     Active Substance: PEVONEDISTAT
     Dosage: 400 MILLIGRAM
     Route: 065
  12. PEVONEDISTAT [Suspect]
     Active Substance: PEVONEDISTAT
     Dosage: 75 MILLIGRAM/SQ. METER
     Route: 065
  13. RAMIPRIL [Concomitant]
     Active Substance: RAMIPRIL
     Indication: Product used for unknown indication
     Dosage: FREQUENCY TEXT: NOT PROVIDED, ONGOING
     Route: 065
     Dates: start: 1991
  14. RAMIPRIL [Concomitant]
     Active Substance: RAMIPRIL
  15. RAMIPRIL [Concomitant]
     Active Substance: RAMIPRIL
  16. AMLODIPINE [Concomitant]
     Active Substance: AMLODIPINE BESYLATE
     Dosage: FREQUENCY TEXT: NOT PROVIDED, ONGOING
     Route: 065
     Dates: start: 2006
  17. AMLODIPINE [Concomitant]
     Active Substance: AMLODIPINE BESYLATE
  18. AMLODIPINE [Concomitant]
     Active Substance: AMLODIPINE BESYLATE
  19. ONDANSETRON [Concomitant]
     Active Substance: ONDANSETRON
     Dosage: FREQUENCY TEXT: NOT PROVIDED, ONGOING
     Route: 065
     Dates: start: 20210409
  20. ONDANSETRON [Concomitant]
     Active Substance: ONDANSETRON
     Indication: Product used for unknown indication
  21. ONDANSETRON [Concomitant]
     Active Substance: ONDANSETRON
  22. ACETAMINOPHEN AND CODEINE [Concomitant]
     Active Substance: ACETAMINOPHEN\CODEINE PHOSPHATE
     Dosage: ONGOING
     Dates: start: 20210505
  23. ACETAMINOPHEN AND CODEINE [Concomitant]
     Active Substance: ACETAMINOPHEN\CODEINE PHOSPHATE
     Indication: Product used for unknown indication
  24. ACETAMINOPHEN AND CODEINE [Concomitant]
     Active Substance: ACETAMINOPHEN\CODEINE PHOSPHATE
  25. VENLAFAXINE [Concomitant]
     Active Substance: VENLAFAXINE HYDROCHLORIDE
     Dosage: FREQUENCY TEXT: NOT PROVIDED, ONGOING
     Route: 065
     Dates: start: 202105
  26. VENLAFAXINE [Concomitant]
     Active Substance: VENLAFAXINE HYDROCHLORIDE
     Indication: Product used for unknown indication
  27. VENLAFAXINE [Concomitant]
     Active Substance: VENLAFAXINE HYDROCHLORIDE
  28. JANUMET [Concomitant]
     Active Substance: METFORMIN HYDROCHLORIDE\SITAGLIPTIN PHOSPHATE
     Dosage: FREQUENCY TEXT: NOT PROVIDED, ONGOING
     Route: 048
     Dates: start: 20210520
  29. JANUMET [Concomitant]
     Active Substance: METFORMIN HYDROCHLORIDE\SITAGLIPTIN PHOSPHATE
     Indication: Product used for unknown indication
  30. JANUMET [Concomitant]
     Active Substance: METFORMIN HYDROCHLORIDE\SITAGLIPTIN PHOSPHATE
  31. SODIUM CHLORIDE [Concomitant]
     Active Substance: SODIUM CHLORIDE
     Dosage: FREQUENCY TEXT: NOT PROVIDED, ONGOING
     Route: 065
     Dates: start: 20210628
  32. SODIUM CHLORIDE [Concomitant]
     Active Substance: SODIUM CHLORIDE
     Indication: Product used for unknown indication
  33. SODIUM CHLORIDE [Concomitant]
     Active Substance: SODIUM CHLORIDE
  34. PROCHLORPERAZINE [Concomitant]
     Active Substance: PROCHLORPERAZINE
     Dosage: FREQUENCY TEXT: NOT PROVIDED, ONGOING
     Route: 065
     Dates: start: 20210409
  35. PROCHLORPERAZINE [Concomitant]
     Active Substance: PROCHLORPERAZINE
     Indication: Product used for unknown indication
  36. PROCHLORPERAZINE [Concomitant]
     Active Substance: PROCHLORPERAZINE
  37. LORAZEPAM [Concomitant]
     Active Substance: LORAZEPAM
     Indication: Product used for unknown indication
     Dosage: FREQUENCY TEXT: NOT PROVIDED, ONGOING
     Route: 065
     Dates: start: 2001
  38. LORAZEPAM [Concomitant]
     Active Substance: LORAZEPAM
  39. LORAZEPAM [Concomitant]
     Active Substance: LORAZEPAM
  40. CARBIDOPA AND LEVODOPA [Concomitant]
     Active Substance: CARBIDOPA\LEVODOPA
     Indication: Restless legs syndrome
     Dosage: ONGOING
     Route: 065
     Dates: start: 2016
  41. CARBIDOPA AND LEVODOPA [Concomitant]
     Active Substance: CARBIDOPA\LEVODOPA
  42. CARBIDOPA AND LEVODOPA [Concomitant]
     Active Substance: CARBIDOPA\LEVODOPA
  43. RABEPRAZOLE [Concomitant]
     Active Substance: RABEPRAZOLE
     Dosage: FREQUENCY TEXT: NOT PROVIDED, ONGOING
     Route: 065
     Dates: start: 2016
  44. RABEPRAZOLE [Concomitant]
     Active Substance: RABEPRAZOLE
     Indication: Product used for unknown indication
  45. RABEPRAZOLE [Concomitant]
     Active Substance: RABEPRAZOLE
  46. GLICLAZIDE [Concomitant]
     Active Substance: GLICLAZIDE
     Indication: Product used for unknown indication
     Dosage: FREQUENCY TEXT: NOT PROVIDED, ONGOING
     Route: 065
     Dates: start: 2009
  47. GLICLAZIDE [Concomitant]
     Active Substance: GLICLAZIDE
  48. GLICLAZIDE [Concomitant]
     Active Substance: GLICLAZIDE
  49. SENOKOT [Concomitant]
     Active Substance: SENNOSIDES
     Dosage: FREQUENCY TEXT: NOT PROVIDED, ONGOING
     Route: 065
     Dates: start: 2020
  50. SENOKOT [Concomitant]
     Active Substance: SENNOSIDES
     Indication: Product used for unknown indication
  51. SENOKOT [Concomitant]
     Active Substance: SENNOSIDES
  52. PREDNISONE [Concomitant]
     Active Substance: PREDNISONE
     Indication: Product used for unknown indication
     Dosage: ONGOING
     Route: 065
     Dates: start: 20211004
  53. ATORVASTATIN [Concomitant]
     Active Substance: ATORVASTATIN
     Indication: Product used for unknown indication
     Dosage: FREQUENCY TEXT: NOT PROVIDED, ONGOING
     Route: 065
     Dates: start: 1991
  54. TYLENOL [Concomitant]
     Active Substance: ACETAMINOPHEN
     Indication: Product used for unknown indication
     Dosage: FREQUENCY TEXT: NOT PROVIDED, ONGOING
     Route: 065
     Dates: start: 20210416
  55. CEPHALEXIN [Concomitant]
     Active Substance: CEPHALEXIN
     Indication: Product used for unknown indication
     Dosage: FREQUENCY TEXT: NOT PROVIDED, ONGOING
     Route: 065
     Dates: start: 20211004, end: 20211014

REACTIONS (3)
  - Febrile neutropenia [Recovered/Resolved]
  - Sepsis [Fatal]
  - Disease recurrence [Not Recovered/Not Resolved]

NARRATIVE: CASE EVENT DATE: 20211103
